FAERS Safety Report 10279849 (Version 1)
Quarter: 2014Q3

REPORT INFORMATION
  Report Type: Report from Study
  Country: GR (occurrence: GR)
  Receive Date: 20140707
  Receipt Date: 20140707
  Transmission Date: 20150326
  Serious: Yes (Hospitalization)
  Sender: FDA-Public Use
  Company Number: GR-CELGENEUS-066-21660-14064834

PATIENT
  Age: 41 Year
  Sex: Female
  Weight: 41 kg

DRUGS (9)
  1. ABRAXANE [Suspect]
     Active Substance: PACLITAXEL
     Indication: GASTRIC CANCER
     Dosage: 200 MG (150 DOSAGE FORM)
     Route: 041
     Dates: start: 20121115, end: 20121122
  2. REMERON [Concomitant]
     Active Substance: MIRTAZAPINE
     Indication: DEPRESSION
     Dosage: 30 MILLIGRAM
     Route: 048
     Dates: start: 20121115
  3. FENTANYL. [Concomitant]
     Active Substance: FENTANYL
     Indication: ANALGESIC THERAPY
     Dosage: 50 MILLIGRAM
     Route: 065
     Dates: start: 20121115, end: 20121122
  4. DEPON [Concomitant]
     Active Substance: ACETAMINOPHEN
     Indication: ANALGESIC THERAPY
     Dosage: 3 GRAM
     Route: 048
     Dates: start: 20121115
  5. LONALGAL [Concomitant]
     Indication: ANALGESIC THERAPY
     Dosage: 30+500 MG
     Route: 048
     Dates: start: 20121115
  6. DEPON [Concomitant]
     Active Substance: ACETAMINOPHEN
     Indication: ADVERSE EVENT
     Route: 041
     Dates: start: 201211
  7. CYMBALTA [Concomitant]
     Active Substance: DULOXETINE HYDROCHLORIDE
     Indication: ANXIETY DISORDER
     Dosage: 60 MILLIGRAM
     Route: 048
     Dates: start: 20121115
  8. XANAX [Concomitant]
     Active Substance: ALPRAZOLAM
     Indication: ANXIETY DISORDER
     Dosage: .5 MILLIGRAM
     Route: 048
     Dates: start: 20121115
  9. ZOMETA [Concomitant]
     Active Substance: ZOLEDRONIC ACID
     Indication: METASTASES TO BONE
     Dosage: 4 MILLIGRAM
     Route: 041
     Dates: start: 20120731

REACTIONS (3)
  - Pyrexia [Recovered/Resolved]
  - Alopecia [Recovered/Resolved]
  - Chills [Recovered/Resolved]

NARRATIVE: CASE EVENT DATE: 20121122
